FAERS Safety Report 8397040-7 (Version None)
Quarter: 2012Q2

REPORT INFORMATION
  Report Type: 
  Country: None (occurrence: None)
  Receive Date: 20120530
  Receipt Date: 20120524
  Transmission Date: 20120825
  Serious: Yes (Life-Threatening, Other)
  Sender: FDA-Public Use
  Company Number: JP-CELGENEUS-087-50794-12052911

PATIENT
  Sex: Male
  Weight: 12 kg

DRUGS (24)
  1. VIDAZA [Suspect]
     Dosage: 100 MILLIGRAM
     Route: 041
     Dates: start: 20111117, end: 20111123
  2. CEFOTIAM HYDROCHLORIDE [Concomitant]
     Route: 065
     Dates: start: 20110909, end: 20110923
  3. TARGOCID [Concomitant]
     Route: 065
     Dates: start: 20120114, end: 20120119
  4. PROGRAF [Concomitant]
     Route: 065
     Dates: start: 20110928, end: 20111013
  5. METHOTREXATE [Concomitant]
     Route: 065
     Dates: end: 20120119
  6. FIRSTCIN [Concomitant]
     Route: 065
     Dates: start: 20110923, end: 20111017
  7. VIDAZA [Suspect]
     Dosage: 100 MILLIGRAM
     Route: 041
     Dates: start: 20110914, end: 20110920
  8. FUNGUARD [Concomitant]
     Route: 065
     Dates: start: 20110913, end: 20120119
  9. CEFOTIAM HYDROCHLORIDE [Concomitant]
     Route: 065
     Dates: start: 20111122, end: 20111130
  10. VICCLOX [Concomitant]
     Route: 065
     Dates: start: 20110913, end: 20120119
  11. PREDNISOLONE [Concomitant]
     Dates: start: 20110924, end: 20120119
  12. MEROPENEM [Concomitant]
     Route: 065
     Dates: start: 20111221, end: 20120119
  13. AMBISOME [Concomitant]
     Route: 065
     Dates: start: 20120117, end: 20120119
  14. FIRSTCIN [Concomitant]
     Route: 065
     Dates: start: 20111115, end: 20111118
  15. ZONISAMIDE [Concomitant]
     Route: 065
  16. VIDAZA [Suspect]
     Dosage: 100 MILLIGRAM
     Route: 041
     Dates: start: 20111221, end: 20111227
  17. PROGRAF [Concomitant]
     Route: 065
     Dates: start: 20111014, end: 20120119
  18. NORVASC [Concomitant]
     Route: 065
     Dates: start: 20111007, end: 20120119
  19. MEROPENEM [Concomitant]
     Route: 065
     Dates: start: 20111103, end: 20111115
  20. KEPPRA [Concomitant]
     Route: 065
     Dates: start: 20111203, end: 20120119
  21. VIDAZA [Suspect]
     Dosage: 100 MILLIGRAM
     Route: 041
     Dates: start: 20111011, end: 20111017
  22. FIRSTCIN [Concomitant]
     Route: 065
     Dates: start: 20111130, end: 20111221
  23. LASIX [Concomitant]
     Route: 065
     Dates: start: 20111007, end: 20120119
  24. MEROPENEM [Concomitant]
     Route: 065
     Dates: start: 20111017, end: 20111022

REACTIONS (4)
  - HYPERTENSION [None]
  - HAEMORRHAGE [None]
  - PLATELET COUNT DECREASED [None]
  - INFECTION [None]
